FAERS Safety Report 7674520-0 (Version None)
Quarter: 2011Q3

REPORT INFORMATION
  Report Type: 
  Country: None (occurrence: None)
  Receive Date: 20110810
  Receipt Date: 20110801
  Transmission Date: 20111222
  Serious: Yes (Hospitalization, Other)
  Sender: FDA-Public Use
  Company Number: PHHY2011BR70181

PATIENT
  Sex: Female

DRUGS (2)
  1. DIOVAN HCT [Suspect]
     Dosage: UNK UKN, UNK
  2. GALVUS MET [Suspect]
     Dosage: 500/50 MG

REACTIONS (3)
  - MEMORY IMPAIRMENT [None]
  - SPEECH DISORDER [None]
  - CEREBROVASCULAR ACCIDENT [None]
